FAERS Safety Report 8171439-6 (Version None)
Quarter: 2012Q1

REPORT INFORMATION
  Report Type: 
  Country: None (occurrence: None)
  Receive Date: 20120228
  Receipt Date: 20120217
  Transmission Date: 20120608
  Serious: Yes (Hospitalization, Other)
  Sender: FDA-Public Use
  Company Number: US-BAXTER-2012BH000041

PATIENT
  Sex: Female

DRUGS (4)
  1. DIANEAL [Suspect]
     Indication: PERITONEAL DIALYSIS
     Route: 033
     Dates: end: 20111201
  2. DIANEAL [Suspect]
     Route: 033
     Dates: start: 20120211
  3. DIANEAL [Suspect]
     Indication: PERITONEAL DIALYSIS
     Route: 033
     Dates: end: 20111201
  4. DIANEAL [Suspect]
     Route: 033
     Dates: start: 20120211

REACTIONS (6)
  - LOSS OF CONSCIOUSNESS [None]
  - HAEMORRHAGE [None]
  - HYPOTENSION [None]
  - SHOCK [None]
  - GASTROINTESTINAL HAEMORRHAGE [None]
  - HYPERTENSION [None]
